FAERS Safety Report 19567799 (Version 4)
Quarter: 2022Q1

REPORT INFORMATION
  Report Type: Report from Study
  Country: US (occurrence: US)
  Receive Date: 20210716
  Receipt Date: 20220205
  Transmission Date: 20220423
  Serious: Yes (Hospitalization, Other)
  Sender: FDA-Public Use
  Company Number: US-SANOFI-00640316

PATIENT
  Age: 91 Year
  Sex: Female

DRUGS (6)
  1. DUPILUMAB [Suspect]
     Active Substance: DUPILUMAB
     Indication: Dermatitis atopic
     Dosage: 600 MG, 1X
     Route: 058
     Dates: start: 20210428, end: 20210428
  2. DUPILUMAB [Suspect]
     Active Substance: DUPILUMAB
     Dosage: 300 MG, QOW
     Route: 058
     Dates: start: 20210602, end: 20210630
  3. DUPILUMAB [Suspect]
     Active Substance: DUPILUMAB
     Dosage: 300 MG, QOW
     Route: 058
     Dates: start: 20210709, end: 2021
  4. DUPILUMAB [Suspect]
     Active Substance: DUPILUMAB
     Dosage: 200 MG, QOW
     Route: 058
     Dates: start: 20211111
  5. DUPILUMAB [Suspect]
     Active Substance: DUPILUMAB
     Dosage: 200 MG, QOW
     Route: 058
     Dates: start: 20211125
  6. COVID-19 VACCINE [Concomitant]
     Indication: Immunisation
     Dosage: UNK
     Route: 065
     Dates: start: 20210828, end: 20210828

REACTIONS (20)
  - Urinary tract infection [Recovering/Resolving]
  - Kidney infection [Not Recovered/Not Resolved]
  - Retinal oedema [Not Recovered/Not Resolved]
  - Pelvic organ prolapse [Not Recovered/Not Resolved]
  - Hallucination [Unknown]
  - Cystitis [Recovered/Resolved]
  - Back pain [Recovered/Resolved]
  - Off label use [Unknown]
  - Erythema [Unknown]
  - Pyrexia [Unknown]
  - Otorrhoea [Unknown]
  - Pruritus [Unknown]
  - Skin swelling [Unknown]
  - Fall [Unknown]
  - Joint injury [Unknown]
  - Fatigue [Unknown]
  - Somnolence [Unknown]
  - Visual impairment [Not Recovered/Not Resolved]
  - Dermatitis atopic [Recovered/Resolved]
  - Hypersensitivity [Not Recovered/Not Resolved]

NARRATIVE: CASE EVENT DATE: 20210101
